FAERS Safety Report 6119373 (Version 11)
Quarter: 2013Q1

REPORT INFORMATION
  Report Type: Spontaneous
  Country: US (occurrence: US)
  Receive Date: 20060831
  Receipt Date: 20130130
  Transmission Date: 20140127
  Serious: Yes (Death, Hospitalization, Other)
  Sender: FDA-Public Use
  Company Number: PHEH2006US10970

PATIENT
  Age: 60 Year
  Sex: Female
  Weight: 86.17 kg

DRUGS (83)
  1. AREDIA [Suspect]
     Indication: METASTASES TO BONE
     Dosage: UNK
     Route: 042
     Dates: start: 200309
  2. AREDIA [Suspect]
     Dosage: 90 MG, Q4W
     Route: 042
     Dates: start: 20031105, end: 20050105
  3. ZOMETA [Suspect]
     Dosage: 4 MG, QW4
     Dates: start: 20050203, end: 200603
  4. FEMARA [Concomitant]
     Dosage: 2.5 MG, QD
     Route: 048
  5. DEXAMETHASONE [Concomitant]
     Dosage: 10 MG, Q4W
     Route: 042
     Dates: start: 20031105
  6. COENZYME Q10 [Concomitant]
  7. GARLIC [Concomitant]
  8. DIGESTIVE ENZYMES [Concomitant]
  9. SELENIUM [Concomitant]
  10. MULTIVITAMINS [Concomitant]
  11. LETROZOLE [Concomitant]
  12. EXEMESTANE [Concomitant]
     Dosage: 25 MG, QD
  13. MECLIZINE [Concomitant]
  14. CELEBREX [Concomitant]
     Dosage: 200 MG, QD
  15. CHEMOTHERAPEUTICS NOS [Concomitant]
  16. RISEDRONATE SODIUM [Concomitant]
     Dosage: 35 MG, QW
     Route: 048
  17. HYDROMORPHONE HYDROCHLORIDE [Concomitant]
     Dosage: 1 DF, EVERY 4 - 6 HOURS AS NEEDED
     Route: 048
     Dates: start: 20100514
  18. PROPOXYPHENE HCL AND ACETAMINOPHEN [Concomitant]
     Indication: PAIN
     Dosage: 1 DF, 65-650 MG, 1 TABLET EVERY 4 HRS AS NEEDED
     Route: 048
     Dates: start: 20091026, end: 20100412
  19. ERGOCALCIFEROL [Concomitant]
     Dosage: 1 DF, QW
     Route: 048
     Dates: start: 20100506
  20. MORPHINE SULFATE [Concomitant]
     Dosage: 0.5 ML, TAKE 0.5 ML (10 MG) EVERY 4 HRS AS NEEDED
     Route: 048
     Dates: start: 20100222
  21. MORPHINE SULFATE [Concomitant]
     Dosage: 0.5 ML, TAKE 0.5 ML (10 MG) EVERY 4 HRS AS NEEDED
     Route: 048
     Dates: start: 20100409
  22. METHYLPREDNISOLONE [Concomitant]
     Dosage: 4 MG, AS DIRECTED
     Route: 048
     Dates: start: 20100324
  23. FLUOXETINE HYDROCHLORIDE [Concomitant]
     Dosage: 2 DF, EVERY DAY IN THE MORNING
     Route: 048
     Dates: start: 20100204
  24. FERROUS FUMARATE [Concomitant]
     Dosage: 1 DF, DAILY
     Route: 048
     Dates: start: 20091022
  25. UBIDECARENONE [Concomitant]
     Dosage: 2 DF, DAILY
     Dates: start: 20090807
  26. LORAZEPAM [Concomitant]
     Dosage: 2 MG, Q6H
     Route: 048
     Dates: start: 20090416
  27. ONDASETRON [Concomitant]
     Indication: NAUSEA
     Dosage: 4 MG, Q8H
     Dates: start: 20090416
  28. MS CONTIN [Concomitant]
     Indication: PAIN
     Dosage: 60 UKN, BID (UNITS NOT SPECIFIED)
  29. GABAPENTIN [Concomitant]
     Indication: PAIN
  30. FLUCONAZOLE [Concomitant]
     Dosage: 150 MG, FOR EVERY 3 DAYS
     Route: 048
     Dates: start: 20091106
  31. ACETAMINOPHEN W/PROPOXYPHENE [Concomitant]
     Indication: PAIN
     Dosage: 1 DF, 100 - 650 MG, 1 TABLET EVERY 4 - 6 HRS AS NEEDED
     Route: 048
     Dates: start: 20091102
  32. ACETAMINOPHEN W/PROPOXYPHENE [Concomitant]
     Dosage: 1 DF, 100 - 650 MG, 1 TABLET EVERY 4 - 6 HRS AS NEEDED
     Route: 048
     Dates: start: 20100514
  33. PROMETHAZINE HYDROCHLORIDE [Concomitant]
     Dosage: 25 MG, Q6H
     Route: 048
     Dates: start: 20090416
  34. ESOMEPRAZOLE MAGNESIUM [Concomitant]
     Dosage: 40 MG, BEFORE BREAKFAST
     Route: 048
     Dates: start: 20090416
  35. ROXANOL [Concomitant]
  36. COLACE [Concomitant]
     Indication: CONSTIPATION
     Dosage: UNK UKN, AT NIGHT
  37. SENOKOT [Concomitant]
     Indication: CONSTIPATION
  38. DARVON [Concomitant]
  39. ATIVAN [Concomitant]
  40. TOPROL XL [Concomitant]
     Dosage: 1 DF, DAILY
     Route: 048
  41. DARVOCET-N [Concomitant]
     Dosage: 1 DF, Q6H, 100-650 MG, ONE TABLET EVERY 6 HRS
     Route: 048
  42. CIPRO [Concomitant]
     Dosage: 500 MG, BID
     Route: 048
  43. ASTELIN [Concomitant]
  44. LEVAQUIN [Concomitant]
     Dosage: 750 MG, DAILY
  45. MITOMYCIN-C + 5-FU [Concomitant]
  46. PRED-FORTE [Concomitant]
  47. ZOCOR ^DIECKMANN^ [Concomitant]
     Dosage: 20 MG, DAILY
  48. ECONOPRED [Concomitant]
     Dosage: 1 DF, 1 DROP THRICE DAILY TO THE RIGHT EYE
  49. FISH OIL [Concomitant]
  50. SHARK-LIVER OIL [Concomitant]
  51. MINERAL SUPPLEMENTS [Concomitant]
  52. INSULIN [Concomitant]
  53. FASLODEX [Concomitant]
     Dates: start: 20070806
  54. LODINE [Concomitant]
     Dosage: 400 MG, BID
  55. CLARITIN [Concomitant]
  56. THYROID HORMONES [Concomitant]
     Dosage: 60 MG, QD
     Route: 048
  57. AMBIEN [Concomitant]
  58. BEXTRA [Concomitant]
  59. OMNICEF [Concomitant]
  60. PENLAC [Concomitant]
  61. HUMIBID [Concomitant]
  62. AROMASIN [Concomitant]
  63. ZITHROMAX ^HEINRICH MACK^ [Concomitant]
  64. AVELOX [Concomitant]
  65. ULTRAM [Concomitant]
  66. SKELAXIN [Concomitant]
  67. LYRICA [Concomitant]
  68. ESTRACE ^BRISTOL-MYERS SQUIBB^ [Concomitant]
  69. PROLEX D [Concomitant]
  70. ANTIVERT ^PFIZER^ [Concomitant]
  71. DIFLUCAN [Concomitant]
  72. ALPHAGAN [Concomitant]
  73. COSOPT [Concomitant]
  74. VITAMIN D [Concomitant]
  75. DECADRON [Concomitant]
  76. SCOPOLAMINE [Concomitant]
  77. MSIR [Concomitant]
     Dosage: 80 MG, QD
  78. MSIR [Concomitant]
     Dosage: 300 MG, BID
  79. LASIX [Concomitant]
     Dosage: 20 MG, QD
  80. WELLBUTRIN [Concomitant]
     Dosage: 150 MG, QD
     Dates: end: 20100920
  81. MIRALAX [Concomitant]
     Dosage: 17 G, BID
  82. MUCINEX DM [Concomitant]
     Dosage: 600 MG, BID
     Route: 048
  83. NEURONTIN [Concomitant]
     Dosage: 300 MG, BID
     Route: 048

REACTIONS (84)
  - Death [Fatal]
  - Osteonecrosis of jaw [Unknown]
  - General physical health deterioration [Unknown]
  - Back pain [Unknown]
  - Anxiety [Unknown]
  - Tongue ulceration [Unknown]
  - Pain in jaw [Unknown]
  - Mouth ulceration [Unknown]
  - Decreased interest [Unknown]
  - Hypoaesthesia oral [Unknown]
  - Toothache [Unknown]
  - Glossitis [Unknown]
  - Bone disorder [Unknown]
  - Metastases to bone [Unknown]
  - Metastases to liver [Unknown]
  - Loss of consciousness [Unknown]
  - Swollen tongue [Unknown]
  - Dizziness [Unknown]
  - Syncope [Unknown]
  - Vertigo [Unknown]
  - Hyperhidrosis [Unknown]
  - Dry mouth [Unknown]
  - Fatigue [Unknown]
  - Arthralgia [Unknown]
  - Pain in extremity [Unknown]
  - Influenza like illness [Unknown]
  - Pollakiuria [Unknown]
  - Nocturia [Unknown]
  - Cholelithiasis [Unknown]
  - Rash [Unknown]
  - Myalgia [Unknown]
  - Palpitations [Unknown]
  - Chromaturia [Unknown]
  - Dry eye [Unknown]
  - Bruxism [Unknown]
  - Hip fracture [Unknown]
  - Dysuria [Unknown]
  - Abdominal distension [Unknown]
  - Spinal pain [Unknown]
  - Back disorder [Unknown]
  - Nausea [Unknown]
  - Sinusitis [Unknown]
  - Facial pain [Unknown]
  - Headache [Unknown]
  - Nasal congestion [Unknown]
  - Constipation [Unknown]
  - Lymphadenopathy [Unknown]
  - Asthenia [Unknown]
  - Central nervous system lesion [Unknown]
  - Device related infection [Unknown]
  - Amaurosis fugax [Unknown]
  - Dyspnoea [Unknown]
  - Cataract [Unknown]
  - Intraocular pressure increased [Unknown]
  - Iris adhesions [Unknown]
  - Visual impairment [Unknown]
  - Atrophic vulvovaginitis [Unknown]
  - Cough [Unknown]
  - Gastritis [Unknown]
  - Bronchitis [Unknown]
  - Diplopia [Unknown]
  - Ascites [Unknown]
  - Pain [Unknown]
  - Physical disability [Unknown]
  - Eye irritation [Unknown]
  - Blindness [Unknown]
  - Hyperthermia [Unknown]
  - Hypotension [Unknown]
  - Hepatic steatosis [Unknown]
  - Hepatic lesion [Unknown]
  - Benign neoplasm of adrenal gland [Unknown]
  - Macular degeneration [Unknown]
  - Osteopenia [Unknown]
  - Macular cyst [Unknown]
  - Macular hole [Unknown]
  - Pathological fracture [Unknown]
  - Excoriation [Recovered/Resolved]
  - Confusional state [Unknown]
  - Hallucination [Recovering/Resolving]
  - Delusion [Unknown]
  - Fall [Unknown]
  - Aspiration [Unknown]
  - Dysphagia [Unknown]
  - Face oedema [Unknown]
